FAERS Safety Report 7574138-4 (Version None)
Quarter: 2011Q2

REPORT INFORMATION
  Report Type: 
  Country: None (occurrence: None)
  Receive Date: 20110621
  Receipt Date: 20090925
  Transmission Date: 20111010
  Serious: Yes (Disabling)
  Sender: FDA-Public Use
  Company Number: 2009-4041

PATIENT
  Age: 63 Year
  Sex: Female

DRUGS (5)
  1. DYSPORT [Suspect]
     Indication: MUSCLE SPASTICITY
     Dosage: (SINGLE CYCLE), INTRAMUSCULAR
     Route: 030
     Dates: start: 20090624, end: 20090624
  2. RIVOTRIL (CLONAZEPAM) [Concomitant]
  3. RENITEC (ENALAPRIL) [Concomitant]
  4. AMITRIPTYLINE HCL [Concomitant]
  5. NEURONTIN [Concomitant]

REACTIONS (5)
  - DYSPHONIA [None]
  - WEIGHT DECREASED [None]
  - DYSPHAGIA [None]
  - PRODUCT QUALITY ISSUE [None]
  - ASTHENIA [None]
